FAERS Safety Report 12084097 (Version 8)
Quarter: 2016Q2

REPORT INFORMATION
  Report Type: Spontaneous
  Country: IL (occurrence: IL)
  Receive Date: 20160217
  Receipt Date: 20160617
  Transmission Date: 20160815
  Serious: Yes (Other)
  Sender: FDA-Public Use
  Company Number: IL-PFIZER INC-2016086456

PATIENT
  Age: 72 Year
  Sex: Male

DRUGS (1)
  1. ELELYSO [Suspect]
     Active Substance: TALIGLUCERASE ALFA
     Indication: GAUCHER^S DISEASE
     Dosage: 1800 UNITS EVERY 2 WEEKS
     Route: 042

REACTIONS (3)
  - Inguinal hernia [Recovered/Resolved]
  - Cough [Recovered/Resolved]
  - Bladder neoplasm [Unknown]
